FAERS Safety Report 7353530-7 (Version None)
Quarter: 2011Q1

REPORT INFORMATION
  Report Type: 
  Country: None (occurrence: None)
  Receive Date: 20110315
  Receipt Date: 20110314
  Transmission Date: 20110831
  Serious: Yes (Hospitalization)
  Sender: FDA-Public Use
  Company Number: FR-PURDUE-GBR-2010-0006056

PATIENT
  Sex: Female

DRUGS (14)
  1. TERCIAN                            /00759301/ [Concomitant]
     Dosage: 5 DROP, TID
  2. SECTRAL [Concomitant]
     Dosage: 200 MG, DAILY
  3. NEXIUM [Concomitant]
     Dosage: 40 MG, DAILY
  4. LYRICA [Concomitant]
     Dosage: 100 MG, BID
  5. EQUANIL [Concomitant]
     Dosage: 250 MG, DAILY
  6. LASIX [Concomitant]
     Dosage: 40 MG, BID
  7. OXYCONTIN [Suspect]
     Dosage: 5 MG, UNK
     Route: 048
  8. ALPRAZOLAM [Concomitant]
     Dosage: .25 MG, TID
  9. KARDEGIC [Concomitant]
     Dosage: 75 MG, DAILY
  10. LAROXYL [Concomitant]
     Dosage: 5 DROP, AM
  11. ESIDRIX [Concomitant]
     Dosage: 25 MG, DAILY
  12. LAROXYL [Concomitant]
     Dosage: 10 DROP, NOCTE
  13. OXYCONTIN [Suspect]
     Indication: ARTHROPATHY
     Dosage: 30 MG, BID
     Route: 048
     Dates: end: 20090711
  14. DAFALGAN [Concomitant]
     Dosage: 1000 MG, TID

REACTIONS (5)
  - RENAL FAILURE ACUTE [None]
  - SOMNOLENCE [None]
  - URINARY RETENTION [None]
  - BRONCHIAL OBSTRUCTION [None]
  - PNEUMONIA ASPIRATION [None]
